FAERS Safety Report 9270157 (Version 2)
Quarter: 2013Q2

REPORT INFORMATION
  Report Type: Spontaneous
  Country: RU (occurrence: RU)
  Receive Date: 20130503
  Receipt Date: 20130613
  Transmission Date: 20140414
  Serious: Yes (Other)
  Sender: FDA-Public Use
  Company Number: RU-BAYER-2013-054137

PATIENT
  Age: 23 Year
  Sex: Female

DRUGS (1)
  1. YARINA [Suspect]
     Route: 048

REACTIONS (4)
  - Angina pectoris [Recovered/Resolved]
  - Malaise [Recovered/Resolved]
  - Headache [Recovered/Resolved]
  - Nausea [Recovered/Resolved]
